FAERS Safety Report 22174383 (Version 1)
Quarter: 2023Q2

REPORT INFORMATION
  Report Type: Spontaneous
  Country: US (occurrence: US)
  Receive Date: 20230405
  Receipt Date: 20230405
  Transmission Date: 20230722
  Serious: Yes (Other)
  Sender: FDA-Public Use
  Company Number: US-KOREA IPSEN Pharma-2023-07839

PATIENT
  Age: 32 Year
  Sex: Female
  Weight: 59 kg

DRUGS (3)
  1. DYSPORT [Suspect]
     Active Substance: ABOBOTULINUMTOXINA
     Indication: Skin wrinkling
     Dosage: 2.5 ML CC BACTERIOSTATIC?1 CYCLICAL?64 PER INJECTION, 10 SITES INJECTED IN FRONTALIS
     Dates: start: 20230324, end: 20230324
  2. DYSPORT [Suspect]
     Active Substance: ABOBOTULINUMTOXINA
     Indication: Skin wrinkling
  3. DYSPORT [Suspect]
     Active Substance: ABOBOTULINUMTOXINA
     Indication: Off label use

REACTIONS (5)
  - Localised oedema [Not Recovered/Not Resolved]
  - Swelling [Unknown]
  - Injection site nodule [Unknown]
  - Injection site inflammation [Unknown]
  - Off label use [Unknown]

NARRATIVE: CASE EVENT DATE: 20230324
